FAERS Safety Report 13374857 (Version 1)
Quarter: 2017Q1

REPORT INFORMATION
  Report Type: Report from Study
  Country: US (occurrence: US)
  Receive Date: 20170327
  Receipt Date: 20170327
  Transmission Date: 20170429
  Serious: Yes (Hospitalization)
  Sender: FDA-Public Use
  Company Number: US-VIFOR (INTERNATIONAL) INC.-VIT-2017-03017

PATIENT
  Age: 72 Year
  Sex: Female

DRUGS (2)
  1. VELTASSA [Suspect]
     Active Substance: PATIROMER
     Dates: start: 201703
  2. VELTASSA [Suspect]
     Active Substance: PATIROMER
     Indication: PRODUCT USED FOR UNKNOWN INDICATION
     Dates: start: 20170209

REACTIONS (5)
  - Inappropriate schedule of drug administration [Unknown]
  - Anaemia [Unknown]
  - Vomiting [Unknown]
  - Constipation [Unknown]
  - Pancreatitis [Unknown]

NARRATIVE: CASE EVENT DATE: 2017
